FAERS Safety Report 9701855 (Version 2)
Quarter: 2013Q4

REPORT INFORMATION
  Report Type: Report from Study
  Country: JP (occurrence: JP)
  Receive Date: 20131121
  Receipt Date: 20131203
  Transmission Date: 20140711
  Serious: Yes (Death)
  Sender: FDA-Public Use
  Company Number: JP-009507513-1311JPN006674

PATIENT
  Sex: 0
  Weight: 2.15 kg

DRUGS (9)
  1. GANIREST SUBCUTANEOUS 0.25MG SYRINGE [Suspect]
     Indication: PREVENTION OF PREMATURE OVULATION
     Dosage: 0.25 MG, QD, IT IS PATIENT^S MOTHER THAT GANIREST WAS ADMINISTERED.
     Route: 065
     Dates: start: 20100510, end: 20100512
  2. PREGNYL 5000IU [Suspect]
     Indication: OVULATION INDUCTION
     Dosage: 10 (THOUSAND-MILLION UNIT), QD, IT IS PATIENT^S MOTHER THAT GANIREST WAS ADMINISTERED.
     Route: 065
     Dates: start: 20100513, end: 20100513
  3. FOLLISTIM [Suspect]
     Indication: IN VITRO FERTILISATION
     Dosage: 100 (UNDER1000 UNIT), QD, IT IS PATIENT^S MOTHER THAT GANIREST WAS ADMINISTERED.
     Route: 065
     Dates: start: 20100501, end: 20100513
  4. VIBRAMYCIN (DOXYCYCLINE) [Concomitant]
     Indication: PROPHYLAXIS
     Dosage: 1 DF, QD, IT IS PATIENT^S MOTHER THAT GANIREST WAS ADMINISTERED.
     Route: 065
     Dates: start: 20100501, end: 20100507
  5. PLANOVAR [Concomitant]
     Indication: IN VITRO FERTILISATION
     Dosage: 1 DF, QD, IT IS PATIENT^S MOTHER THAT GANIREST WAS ADMINISTERED.
     Route: 065
     Dates: start: 20100411, end: 20100427
  6. HMG [Concomitant]
     Indication: IN VITRO FERTILISATION
     Dosage: 75(UNDER1000UNIT), IT IS PATIENT^S MOTHER THAT GANIREST WAS ADMINISTERED.
     Route: 065
     Dates: start: 20100507, end: 20100509
  7. HCG [Concomitant]
     Indication: IN VITRO FERTILISATION
     Dosage: 50(UNDER1000UNIT), QD, IT IS PATIENT^S MOTHER THAT HCG WAS ADMINISTERED
     Route: 065
     Dates: start: 20100510, end: 20100513
  8. PROGESTON [Concomitant]
     Indication: IN VITRO FERTILISATION
     Dosage: 50 MG, QD, IT IS PATIENT^S MOTHER THAT PROGESTERON WAS ADMINISTERED.
     Route: 065
     Dates: start: 20100517, end: 20100606
  9. ESTRANA [Concomitant]
     Indication: IN VITRO FERTILISATION
     Dosage: 1 DF, QD, IT IS PATIENT^S MOTHER THAT ESTORAMA WAS ADMINISTERED.
     Route: 065
     Dates: start: 20100520, end: 20100622

REACTIONS (1)
  - Anencephaly [Fatal]
